FAERS Safety Report 22338376 (Version 4)
Quarter: 2024Q1

REPORT INFORMATION
  Report Type: Other
  Country: CZ (occurrence: CZ)
  Receive Date: 20230518
  Receipt Date: 20240117
  Transmission Date: 20240409
  Serious: Yes (Hospitalization, Other)
  Sender: FDA-Public Use
  Company Number: CZ-MYLANLABS-2023M1051118

PATIENT
  Age: 12 Year
  Sex: Female

DRUGS (4)
  1. INSULIN GLARGINE [Suspect]
     Active Substance: INSULIN GLARGINE
     Indication: Type 1 diabetes mellitus
     Dosage: UNK UNK, QD (PM)
     Route: 058
  2. INSULIN GLARGINE [Suspect]
     Active Substance: INSULIN GLARGINE
     Dosage: UNK (ONE EVENING DOSE, 2 UNITS FOR EVERY 10 GRAMS OF CARBOHYDRATES IN THE MEAL)
     Route: 058
  3. INSULIN ASPART [Suspect]
     Active Substance: INSULIN ASPART
     Indication: Type 1 diabetes mellitus
     Dosage: UNK (IT SHOULD BE TAKEN 10 MINUTES BEFORE MEALS, 2 UNITS FOR EVERY 10 GRAMS OF CARBOHYDRATES IN THE
     Route: 042
  4. INSULIN ASPART [Suspect]
     Active Substance: INSULIN ASPART
     Dosage: UNK
     Route: 042

REACTIONS (11)
  - Diabetic ketoacidosis [Recovered/Resolved]
  - Treatment noncompliance [Recovered/Resolved]
  - Dehydration [Recovered/Resolved]
  - Altered state of consciousness [Recovered/Resolved]
  - Hyperventilation [Recovered/Resolved]
  - Pallor [Recovered/Resolved]
  - Muscular weakness [Recovered/Resolved]
  - Acute kidney injury [Recovered/Resolved]
  - Lactic acidosis [Recovered/Resolved]
  - Diabetic metabolic decompensation [Unknown]
  - Hyperglycaemic hyperosmolar nonketotic syndrome [Recovered/Resolved]
